FAERS Safety Report 4668348-3 (Version None)
Quarter: 2005Q2

REPORT INFORMATION
  Report Type: 
  Country: None (occurrence: None)
  Receive Date: 20050523
  Receipt Date: 20041213
  Transmission Date: 20051028
  Serious: Yes (Other)
  Sender: FDA-Public Use
  Company Number: PHFR2004GB04570

PATIENT
  Age: 44 None
  Sex: Female

DRUGS (5)
  1. ZOMETA [Suspect]
     Indication: METASTASES TO BONE
     Dosage: 4 MG, QMO
     Route: 042
     Dates: start: 20030728, end: 20040811
  2. NAPROXEN [Concomitant]
     Indication: BONE PAIN
     Dosage: 500 MG, QD
     Route: 048
     Dates: end: 20041001
  3. FENTANYL [Concomitant]
     Indication: BONE PAIN
     Dosage: 100MG PATCH
     Route: 061
  4. ANASTROZOLE [Concomitant]
     Indication: BREAST CANCER METASTATIC
     Dosage: 1 MG/DAY
     Route: 048
     Dates: start: 20031101
  5. PAROXETINE [Concomitant]
     Indication: DEPRESSION
     Dosage: 20MG/DAY
     Route: 065
     Dates: start: 20030101

REACTIONS (1)
  - OSTEONECROSIS [None]
